FAERS Safety Report 21782983 (Version 1)
Quarter: 2022Q4

REPORT INFORMATION
  Report Type: Spontaneous
  Country: CN (occurrence: None)
  Receive Date: 20221227
  Receipt Date: 20221227
  Transmission Date: 20230113
  Serious: Yes (Other)
  Sender: FDA-Public Use
  Company Number: CN-ROCHE-3251091

PATIENT
  Age: 72 Year
  Sex: Female
  Weight: 56.5 kg

DRUGS (3)
  1. AVASTIN [Suspect]
     Active Substance: BEVACIZUMAB
     Indication: Malignant anorectal neoplasm
     Route: 041
     Dates: start: 20220530
  2. OXALIPLATIN [Suspect]
     Active Substance: OXALIPLATIN
     Indication: Malignant anorectal neoplasm
     Route: 041
     Dates: start: 20220530
  3. CAPECITABINE [Suspect]
     Active Substance: CAPECITABINE
     Indication: Malignant anorectal neoplasm
     Route: 048
     Dates: start: 20220530

REACTIONS (1)
  - Platelet disorder [Unknown]

NARRATIVE: CASE EVENT DATE: 20220621
